FAERS Safety Report 17842872 (Version 1)
Quarter: 2020Q2

REPORT INFORMATION
  Report Type: Report from Study
  Country: PH (occurrence: PH)
  Receive Date: 20200530
  Receipt Date: 20200530
  Transmission Date: 20200714
  Serious: Yes (Death, Hospitalization)
  Sender: FDA-Public Use
  Company Number: PHHY2019PH208523

PATIENT
  Sex: Male

DRUGS (2)
  1. GLIVEC [Suspect]
     Active Substance: IMATINIB MESYLATE
     Indication: ACUTE LYMPHOCYTIC LEUKAEMIA
     Dosage: 3 DF, QD
     Route: 048
  2. GLIVEC [Suspect]
     Active Substance: IMATINIB MESYLATE
     Dosage: 6 DF, QD
     Route: 048

REACTIONS (6)
  - Acute lymphocytic leukaemia recurrent [Fatal]
  - Hypernatraemia [Fatal]
  - Electrolyte imbalance [Fatal]
  - Product use in unapproved indication [Unknown]
  - Central nervous system leukaemia [Fatal]
  - Hypovolaemic shock [Fatal]
